FAERS Safety Report 15666353 (Version 1)
Quarter: 2018Q4

REPORT INFORMATION
  Report Type: Spontaneous
  Country: AU (occurrence: AU)
  Receive Date: 20181128
  Receipt Date: 20181128
  Transmission Date: 20190205
  Serious: Yes (Other)
  Sender: FDA-Public Use
  Company Number: AU-MYLANLABS-2018M1087941

PATIENT
  Sex: Female

DRUGS (7)
  1. THYROXINE [Concomitant]
     Active Substance: LEVOTHYROXINE
     Indication: HYPOPITUITARISM
     Route: 065
  2. CABERGOLINE. [Suspect]
     Active Substance: CABERGOLINE
     Indication: HYPERPROLACTINAEMIA
     Dosage: SUBSEQUENTLY INCREASED TO 6-7MG WEEKLY OVER TIME
     Route: 065
     Dates: start: 1997
  3. CABERGOLINE. [Suspect]
     Active Substance: CABERGOLINE
     Dosage: 6-7MG WEEKLY, FOLLOWED BY MAINTENANCE AT 6 MG
     Route: 065
  4. CABERGOLINE. [Suspect]
     Active Substance: CABERGOLINE
     Dosage: 6 MILLIGRAM, QW
     Route: 065
  5. CORTISONE ACETATE. [Concomitant]
     Active Substance: CORTISONE ACETATE
     Indication: HYPOPITUITARISM
     Route: 065
  6. ESTROGEN [Concomitant]
     Active Substance: ESTROGENS
     Indication: HYPOGONADISM
     Dosage: REPLACEMENT THERAPY
     Route: 065
  7. CABERGOLINE. [Suspect]
     Active Substance: CABERGOLINE
     Route: 065
     Dates: end: 201704

REACTIONS (1)
  - Cardiac valve disease [Recovering/Resolving]

NARRATIVE: CASE EVENT DATE: 2016
